FAERS Safety Report 8002756-8 (Version None)
Quarter: 2011Q4

REPORT INFORMATION
  Report Type: 
  Country: None (occurrence: None)
  Receive Date: 20111222
  Receipt Date: 20111219
  Transmission Date: 20120403
  Serious: Yes (Other)
  Sender: FDA-Public Use
  Company Number: US-SANOFI-AVENTIS-2011SA082996

PATIENT
  Age: 94 Year
  Sex: Female

DRUGS (3)
  1. ASPIRIN [Concomitant]
  2. PLAVIX [Suspect]
  3. PLAVIX [Suspect]

REACTIONS (3)
  - PARALYSIS [None]
  - FALL [None]
  - HALLUCINATION [None]
